FAERS Safety Report 24127344 (Version 1)
Quarter: 2024Q3

REPORT INFORMATION
  Report Type: Report from Study
  Country: US (occurrence: US)
  Receive Date: 20240723
  Receipt Date: 20240723
  Transmission Date: 20241016
  Serious: No
  Sender: VANDA PHARMACEUTICALS
  Company Number: US-VANDA PHARMACEUTICALS, INC-2023TASUS006899

PATIENT
  Sex: Female

DRUGS (1)
  1. HETLIOZ [Suspect]
     Active Substance: TASIMELTEON
     Indication: Insomnia
     Dosage: 20 MILLIGRAM, QD, BY MOUTH, NIGHTLY
     Route: 048
     Dates: start: 202212, end: 202302

REACTIONS (3)
  - Drug interaction [Unknown]
  - Skin exfoliation [Unknown]
  - Drug ineffective [Unknown]
